FAERS Safety Report 6163439-2 (Version None)
Quarter: 2009Q2

REPORT INFORMATION
  Report Type: 
  Country: None (occurrence: None)
  Receive Date: 20090420
  Receipt Date: 20090420
  Transmission Date: 20091009
  Serious: No
  Sender: FDA-Public Use
  Company Number: None

PATIENT
  Age: 60 Year
  Sex: Male
  Weight: 81.6 kg

DRUGS (4)
  1. VARENICLINE [Suspect]
     Indication: SMOKING CESSATION THERAPY
     Dosage: 1 MG BID PO
     Route: 048
     Dates: start: 20071002, end: 20081002
  2. FLUNISOLIDE NASAL SOLN [Concomitant]
  3. OMEPRAZOLE [Concomitant]
  4. VARDENAFIL HCL [Concomitant]

REACTIONS (2)
  - ANXIETY [None]
  - DYSPHORIA [None]
